FAERS Safety Report 18139197 (Version 1)
Quarter: 2020Q3

REPORT INFORMATION
  Report Type: Spontaneous
  Country: US (occurrence: US)
  Receive Date: 20200812
  Receipt Date: 20200812
  Transmission Date: 20201103
  Serious: Yes (Hospitalization, Other)
  Sender: FDA-Public Use
  Company Number: US-BAYER-2016-107683

PATIENT
  Age: 62 Year
  Sex: Male
  Weight: 71.1 kg

DRUGS (4)
  1. ASPIRIN (CARDIO) [Suspect]
     Active Substance: ASPIRIN
     Indication: ATRIAL FLUTTER
     Dosage: 81 MG, QD
     Route: 048
     Dates: end: 201507
  2. XARELTO [Suspect]
     Active Substance: RIVAROXABAN
     Indication: CEREBROVASCULAR ACCIDENT PROPHYLAXIS
  3. XARELTO [Suspect]
     Active Substance: RIVAROXABAN
     Indication: ATRIAL FLUTTER
  4. XARELTO [Suspect]
     Active Substance: RIVAROXABAN
     Indication: ATRIAL FIBRILLATION
     Dosage: 20 MG
     Route: 048
     Dates: start: 20150420, end: 20150630

REACTIONS (6)
  - Crohn^s disease [Unknown]
  - Pleural effusion [Recovering/Resolving]
  - Ecchymosis [Unknown]
  - Gastrointestinal haemorrhage [Recovering/Resolving]
  - Anaemia [Recovering/Resolving]
  - Epistaxis [Unknown]

NARRATIVE: CASE EVENT DATE: 20150505
